FAERS Safety Report 4705296-4 (Version None)
Quarter: 2005Q3

REPORT INFORMATION
  Report Type: 
  Country: None (occurrence: None)
  Receive Date: 20050701
  Receipt Date: 20050622
  Transmission Date: 20060218
  Serious: Yes (Hospitalization)
  Sender: FDA-Public Use
  Company Number: FI-ROCHE-408455

PATIENT
  Age: 48 Year
  Sex: Female

DRUGS (3)
  1. CAPECITABINE [Suspect]
     Indication: BREAST CANCER
     Dosage: START STATED AS 15 JUNE  15 DAYS THERAPY 7 DAYS REST
     Route: 048
  2. DOCETAXEL [Suspect]
     Indication: BREAST CANCER
     Dosage: START 16 JUN
     Route: 042
  3. ZOLOFT [Suspect]
     Route: 048

REACTIONS (2)
  - CONVULSION [None]
  - HYPOKALAEMIA [None]
